FAERS Safety Report 9396679 (Version 1)
Quarter: 2013Q3

REPORT INFORMATION
  Report Type: Spontaneous
  Country: MA (occurrence: MA)
  Receive Date: 20130712
  Receipt Date: 20130712
  Transmission Date: 20140515
  Serious: Yes (Other)
  Sender: FDA-Public Use
  Company Number: MA-ROCHE-1246831

PATIENT
  Age: 75 Year
  Sex: Female

DRUGS (2)
  1. PEGASYS [Suspect]
     Indication: HEPATITIS C
     Route: 051
     Dates: start: 201306
  2. COPEGUS [Suspect]
     Indication: HEPATITIS C
     Dosage: 5 TABLETS PER DAY
     Route: 048
     Dates: start: 201306

REACTIONS (2)
  - Retinal haemorrhage [Unknown]
  - Choroidal neovascularisation [Unknown]
